FAERS Safety Report 16261541 (Version 1)
Quarter: 2019Q2

REPORT INFORMATION
  Report Type: Spontaneous
  Country: US (occurrence: US)
  Receive Date: 20190327
  Receipt Date: 20190327
  Transmission Date: 20190711
  Serious: No
  Sender: FDA-Public Use
  Company Number: None

PATIENT
  Age: 50 Year
  Sex: Female

DRUGS (1)
  1. SILDENAFIL TAB 20MG [Suspect]
     Active Substance: SILDENAFIL
     Dates: start: 201803

REACTIONS (4)
  - Product dose omission [None]
  - Product distribution issue [None]
  - Symptom recurrence [None]
  - Pulmonary hypertension [None]

NARRATIVE: CASE EVENT DATE: 20190325
